FAERS Safety Report 10747510 (Version 1)
Quarter: 2015Q1

REPORT INFORMATION
  Report Type: Spontaneous
  Country: US (occurrence: US)
  Receive Date: 20150129
  Receipt Date: 20150129
  Transmission Date: 20150721
  Serious: No
  Sender: FDA-Public Use
  Company Number: US-BIOGENIDEC-2015BI010636

PATIENT
  Age: 39 Year
  Sex: Female

DRUGS (12)
  1. OMEPRAZOLE. [Concomitant]
     Active Substance: OMEPRAZOLE
  2. HYDROCHLOROTHIAZIDE. [Concomitant]
     Active Substance: HYDROCHLOROTHIAZIDE
  3. AVONEX [Suspect]
     Active Substance: INTERFERON BETA-1A
     Indication: MULTIPLE SCLEROSIS
     Route: 030
     Dates: start: 20110207
  4. BACLOFEN. [Concomitant]
     Active Substance: BACLOFEN
  5. TAGAMET HB [Concomitant]
     Active Substance: CIMETIDINE
  6. VICODIN HP [Concomitant]
     Active Substance: ACETAMINOPHEN\HYDROCODONE BITARTRATE
  7. ADVAIR DISKUS [Concomitant]
     Active Substance: FLUTICASONE PROPIONATE\SALMETEROL XINAFOATE
  8. METOPROLOL SUCCINATE ER [Concomitant]
     Active Substance: METOPROLOL SUCCINATE
  9. PIROXICAM. [Concomitant]
     Active Substance: PIROXICAM
  10. NITROGLYCERIN CR [Concomitant]
  11. ACCOLATE [Concomitant]
     Active Substance: ZAFIRLUKAST
  12. FLUOCINOLONE ACETONIDE. [Concomitant]
     Active Substance: FLUOCINOLONE ACETONIDE

REACTIONS (6)
  - Gait disturbance [Unknown]
  - Fatigue [Unknown]
  - Tic [Unknown]
  - Speech disorder [Unknown]
  - Spinal pain [Unknown]
  - Headache [Unknown]
